FAERS Safety Report 6706286-2 (Version None)
Quarter: 2010Q2

REPORT INFORMATION
  Report Type: 
  Country: None (occurrence: None)
  Receive Date: 20100503
  Receipt Date: 20100422
  Transmission Date: 20101027
  Serious: Yes (Hospitalization, Other)
  Sender: FDA-Public Use
  Company Number: US-PFIZER INC-2010051923

PATIENT
  Sex: Male

DRUGS (12)
  1. SUTENT [Suspect]
     Indication: OESOPHAGEAL CARCINOMA
     Dosage: 50 MG, 1X/DAY
     Route: 048
  2. SUTENT [Suspect]
     Indication: LUNG NEOPLASM MALIGNANT
  3. SUTENT [Suspect]
     Indication: METASTASES TO LIVER
  4. LIPITOR [Concomitant]
     Dosage: 40 MG, 1X/DAY
  5. COLACE [Concomitant]
     Dosage: 100 MG, 2X/DAY
  6. LANSOPRAZOLE [Concomitant]
     Dosage: 30 MG, 1X/DAY
  7. FINASTERIDE [Concomitant]
     Dosage: 5 MG, 1X/DAY
  8. ACETYLSALICYLIC ACID [Concomitant]
     Dosage: 81 MG, 1X/DAY
  9. FOLIC ACID [Concomitant]
     Dosage: 1 MG, 1X/DAY
  10. METOPROLOL [Concomitant]
     Dosage: 25 MG, 2X/DAY
  11. DEXAMETHASONE [Concomitant]
     Dosage: 6 MG, 1X/DAY
  12. REGLAN [Concomitant]
     Dosage: 10 MG, 3X/DAY

REACTIONS (2)
  - CHEST PAIN [None]
  - DYSPHAGIA [None]
